FAERS Safety Report 4902172-9 (Version None)
Quarter: 2006Q1

REPORT INFORMATION
  Report Type: 
  Country: None (occurrence: None)
  Receive Date: 20060206
  Receipt Date: 20060126
  Transmission Date: 20060701
  Serious: Yes (Other)
  Sender: FDA-Public Use
  Company Number: DE-JNJFOC-20060105921

PATIENT
  Sex: Male

DRUGS (1)
  1. HALDOL [Suspect]
     Route: 065

REACTIONS (3)
  - DYSKINESIA [None]
  - POSTURE ABNORMAL [None]
  - TRISMUS [None]
